FAERS Safety Report 21962451 (Version 1)
Quarter: 2023Q1

REPORT INFORMATION
  Report Type: Report from Study
  Country: US (occurrence: US)
  Receive Date: 20230207
  Receipt Date: 20230207
  Transmission Date: 20230418
  Serious: Yes (Other)
  Sender: FDA-Public Use
  Company Number: US-TAKEDA-2022TUS038064

PATIENT
  Age: 66 Year
  Sex: Male
  Weight: 79 kg

DRUGS (7)
  1. PONATINIB [Suspect]
     Active Substance: PONATINIB
     Indication: Chronic lymphocytic leukaemia
     Dosage: 45 MILLIGRAM, QD
     Route: 065
     Dates: start: 202206
  2. PONATINIB [Suspect]
     Active Substance: PONATINIB
     Indication: Chronic myeloid leukaemia
     Dosage: 30 MILLIGRAM
     Route: 065
  3. AMLODIPINE [Concomitant]
     Active Substance: AMLODIPINE BESYLATE
     Indication: Hypertension
     Dosage: 40 MILLIGRAM
     Route: 065
  4. LOSARTAN [Concomitant]
     Active Substance: LOSARTAN
     Indication: Hypertension
     Dosage: UNK
     Route: 065
  5. CRESTOR [Concomitant]
     Active Substance: ROSUVASTATIN CALCIUM
     Indication: Blood cholesterol
     Dosage: UNK
     Route: 065
  6. METFORMIN [Concomitant]
     Active Substance: METFORMIN HYDROCHLORIDE
     Indication: Type 2 diabetes mellitus
     Dosage: 200 MILLIGRAM, QD
     Route: 065
  7. FLOMAX [Concomitant]
     Active Substance: TAMSULOSIN HYDROCHLORIDE
     Indication: Prostatomegaly
     Dosage: UNK
     Route: 065

REACTIONS (19)
  - Neuropathy peripheral [Recovered/Resolved]
  - Diabetes mellitus [Unknown]
  - Full blood count decreased [Unknown]
  - Pollakiuria [Unknown]
  - Fungal skin infection [Unknown]
  - Tanning [Unknown]
  - Skin plaque [Unknown]
  - Glycosylated haemoglobin increased [Unknown]
  - Skin discolouration [Unknown]
  - Weight increased [Unknown]
  - Blood glucose increased [Unknown]
  - Blood pressure increased [Recovering/Resolving]
  - Dry skin [Unknown]
  - Skin exfoliation [Recovered/Resolved]
  - Abdominal pain [Not Recovered/Not Resolved]
  - Rash [Unknown]
  - Constipation [Unknown]
  - Product use issue [Unknown]
  - Off label use [Unknown]

NARRATIVE: CASE EVENT DATE: 20220601
